FAERS Safety Report 11491442 (Version 1)
Quarter: 2015Q3

REPORT INFORMATION
  Report Type: Spontaneous
  Country: US (occurrence: US)
  Receive Date: 20150910
  Receipt Date: 20150910
  Transmission Date: 20151125
  Serious: Yes (Other)
  Sender: FDA-Public Use
  Company Number: US-INSYS THERAPEUTICS, INC-INS201509-000371

PATIENT
  Sex: Female

DRUGS (1)
  1. SUBSYS [Suspect]
     Active Substance: FENTANYL

REACTIONS (5)
  - Mood altered [Unknown]
  - Drug ineffective [Unknown]
  - Rectal haemorrhage [Unknown]
  - Haematemesis [Unknown]
  - Constipation [Unknown]
